FAERS Safety Report 4923930-0 (Version None)
Quarter: 2006Q1

REPORT INFORMATION
  Report Type: 
  Country: None (occurrence: None)
  Receive Date: 20060202
  Receipt Date: 20060208
  Transmission Date: 20060701
  Serious: Yes (Other)
  Sender: FDA-Public Use
  Company Number: 221885

PATIENT
  Age: 67 Year
  Sex: Male

DRUGS (9)
  1. RITUXAN [Suspect]
     Indication: NON-HODGKIN'S LYMPHOMA
     Dosage: 580 MG, INTRAVENOUS
     Route: 042
     Dates: start: 20050217, end: 20050310
  2. DOXORUBICIN HCL [Suspect]
     Indication: NON-HODGKIN'S LYMPHOMA
     Dosage: 70 MG, INTRAVENOUS
     Route: 042
     Dates: start: 20050118, end: 20050311
  3. CYCLOPHOSPHAMIDE [Suspect]
     Indication: NON-HODGKIN'S LYMPHOMA
     Dosage: 1100 MG, INTRAVENOUS
     Route: 042
     Dates: start: 20050218, end: 20050311
  4. VINCRISTINE [Suspect]
     Indication: NON-HODGKIN'S LYMPHOMA
     Dosage: 2 MG, INTRAVENOUS
     Route: 042
     Dates: start: 20050318
  5. PREDNISOLONE [Suspect]
     Indication: NON-HODGKIN'S LYMPHOMA
     Dosage: 100 MG, ORAL
     Route: 048
     Dates: start: 20050218, end: 20050311
  6. LOXOPROFEN (LOXOPROFEN SODIUM) [Concomitant]
  7. METHYLPREDNISOLONE [Concomitant]
  8. HYDROCORTISONE [Concomitant]
  9. LOXOPROFEN (LOXOPROFEN SODIUM) [Concomitant]

REACTIONS (8)
  - ALANINE AMINOTRANSFERASE INCREASED [None]
  - ASPARTATE AMINOTRANSFERASE INCREASED [None]
  - CHOLECYSTITIS ACUTE [None]
  - CYANOSIS [None]
  - NEUTROPENIA [None]
  - PULSE ABSENT [None]
  - SEPTIC SHOCK [None]
  - WHITE BLOOD CELL COUNT DECREASED [None]
